FAERS Safety Report 8307290-3 (Version None)
Quarter: 2012Q2

REPORT INFORMATION
  Report Type: 
  Country: None (occurrence: None)
  Receive Date: 20120424
  Receipt Date: 20120416
  Transmission Date: 20120825
  Serious: Yes (Hospitalization, Other)
  Sender: FDA-Public Use
  Company Number: US-BAYER-201033744NA

PATIENT
  Age: 14 Year
  Sex: Female
  Weight: 112.93 kg

DRUGS (4)
  1. YASMIN [Suspect]
     Dosage: UNK UNK, UNK
     Route: 048
     Dates: start: 20030101, end: 20050728
  2. COUMADIN [Concomitant]
  3. YAZ [Suspect]
     Dosage: UNK
     Dates: start: 20030101, end: 20050728
  4. ALBUTEROL [Concomitant]
     Indication: ASTHMA
     Dosage: 2 PUFFS EVERY 4-6 HOURS
     Route: 045
     Dates: start: 20050729

REACTIONS (3)
  - PULMONARY EMBOLISM [None]
  - TRAUMATIC LUNG INJURY [None]
  - DEEP VEIN THROMBOSIS [None]
